FAERS Safety Report 16818212 (Version 1)
Quarter: 2019Q3

REPORT INFORMATION
  Report Type: Spontaneous
  Country: IT (occurrence: IT)
  Receive Date: 20190917
  Receipt Date: 20190917
  Transmission Date: 20191005
  Serious: Yes (Other)
  Sender: FDA-Public Use
  Company Number: IT-JNJFOC-20190916874

PATIENT
  Age: 47 Year
  Sex: Male

DRUGS (4)
  1. SYMTUZA [Suspect]
     Active Substance: COBICISTAT\DARUNAVIR\EMTRICITABINE\TENOFOVIR ALAFENAMIDE
     Indication: HIV INFECTION
     Route: 048
     Dates: start: 20190617, end: 20190624
  2. LORAZEPAM. [Concomitant]
     Active Substance: LORAZEPAM
  3. DIAZEPAM. [Concomitant]
     Active Substance: DIAZEPAM
  4. BUPRENORPHINE. [Concomitant]
     Active Substance: BUPRENORPHINE

REACTIONS (6)
  - Asthenia [Recovering/Resolving]
  - Malaise [Recovering/Resolving]
  - Constipation [Recovering/Resolving]
  - Myalgia [Recovering/Resolving]
  - Vomiting [Recovering/Resolving]
  - Vertigo [Recovering/Resolving]

NARRATIVE: CASE EVENT DATE: 20190618
